FAERS Safety Report 15761324 (Version 2)
Quarter: 2019Q1

REPORT INFORMATION
  Report Type: Spontaneous
  Country: EG (occurrence: EG)
  Receive Date: 20181226
  Receipt Date: 20190114
  Transmission Date: 20190417
  Serious: Yes (Life-Threatening, Other)
  Sender: FDA-Public Use
  Company Number: PHHY2018EG194816

PATIENT
  Age: 1 Year
  Sex: Female
  Weight: 13 kg

DRUGS (3)
  1. FARCOLIN [Concomitant]
     Indication: PRODUCT USED FOR UNKNOWN INDICATION
     Dosage: UNK (3 TIMES)
     Route: 055
     Dates: start: 20181110, end: 20181120
  2. CEFTRIAXONE SANDOZ [Suspect]
     Active Substance: CEFTRIAXONE
     Indication: BRONCHIOLITIS
     Dosage: UNK (ONCE)
     Route: 030
     Dates: start: 20181115, end: 20181115
  3. PREDSOL [Concomitant]
     Active Substance: PREDNISOLONE
     Indication: PRODUCT USED FOR UNKNOWN INDICATION
     Dosage: UNK (3 TIMES)
     Route: 048
     Dates: start: 20181110, end: 20181120

REACTIONS (9)
  - Skin oedema [Unknown]
  - Pruritus [Unknown]
  - Erythema [Recovering/Resolving]
  - Cyanosis [Recovered/Resolved]
  - Respiratory distress [Recovered/Resolved]
  - Hypersensitivity [Recovering/Resolving]
  - Skin discolouration [Recovered/Resolved]
  - Rash generalised [Recovering/Resolving]
  - Allergic oedema [Unknown]

NARRATIVE: CASE EVENT DATE: 20181115
